FAERS Safety Report 18013515 (Version 1)
Quarter: 2020Q3

REPORT INFORMATION
  Report Type: Spontaneous
  Country: US (occurrence: US)
  Receive Date: 20200711
  Receipt Date: 20200711
  Transmission Date: 20201103
  Serious: No
  Sender: FDA-Public Use
  Company Number: None

PATIENT
  Age: 40 Year
  Sex: Female
  Weight: 65.77 kg

DRUGS (1)
  1. PARAGARD T 380A [Suspect]
     Active Substance: COPPER

REACTIONS (8)
  - Uterine pain [None]
  - Vaginal odour [None]
  - Pelvic pain [None]
  - Muscle spasms [None]
  - Dyspareunia [None]
  - Female sexual arousal disorder [None]
  - Vaginal discharge [None]
  - Back pain [None]

NARRATIVE: CASE EVENT DATE: 20191031
